FAERS Safety Report 7911935-7 (Version None)
Quarter: 2011Q4

REPORT INFORMATION
  Report Type: 
  Country: None (occurrence: None)
  Receive Date: 20111114
  Receipt Date: 20111108
  Transmission Date: 20120403
  Serious: Yes (Hospitalization)
  Sender: FDA-Public Use
  Company Number: JP-SHIRE-SPV1-2010-01666

PATIENT
  Sex: Male

DRUGS (12)
  1. LANTHANUM CARBONATE [Suspect]
     Indication: HYPERPHOSPHATAEMIA
     Dosage: 750 MG, OTHER(IMMEDIATELY AFTER MEALS)
     Route: 048
     Dates: start: 20090806, end: 20100324
  2. PURSENNID                          /00142207/ [Concomitant]
     Indication: PRODUCT USED FOR UNKNOWN INDICATION
     Dosage: 3 MG, UNKNOWN
     Route: 048
  3. NITRAZEPAM [Concomitant]
     Indication: PRODUCT USED FOR UNKNOWN INDICATION
     Dosage: 5 MG, UNKNOWN
     Route: 048
  4. LANTHANUM CARBONATE [Suspect]
     Dosage: 750 MG, OTHER(IMMEDIATELY AFTER MEALS)
     Route: 048
     Dates: start: 20110412, end: 20110809
  5. PROTECADIN [Concomitant]
     Indication: PRODUCT USED FOR UNKNOWN INDICATION
     Dosage: 10 MG, UNKNOWN
     Route: 048
  6. MICARDIS [Concomitant]
     Indication: PRODUCT USED FOR UNKNOWN INDICATION
     Dosage: 40 MG, UNKNOWN
     Route: 048
  7. OLOPATADINE HCL [Concomitant]
     Indication: PRODUCT USED FOR UNKNOWN INDICATION
     Dosage: 5 MG, UNKNOWN
     Route: 048
  8. ROHYPNOL [Concomitant]
     Indication: PRODUCT USED FOR UNKNOWN INDICATION
     Dosage: 1 MG, UNKNOWN
     Route: 048
  9. LANTHANUM CARBONATE [Suspect]
     Dosage: 1500 MG, OTHER(IMMEDIATELY AFTER MEALS)
     Route: 048
     Dates: start: 20100817, end: 20101012
  10. NORVASC [Concomitant]
     Indication: PRODUCT USED FOR UNKNOWN INDICATION
     Dosage: 5 MG, UNKNOWN
     Route: 048
  11. CEFAZOLIN SODIUM [Concomitant]
     Indication: PRODUCT USED FOR UNKNOWN INDICATION
     Dosage: 3 DF, UNKNOWN
     Route: 048
  12. LANTHANUM CARBONATE [Suspect]
     Dosage: 750 MG, OTHER(IMMEDIATELY AFTER MEALS)
     Route: 048
     Dates: start: 20100420, end: 20100816

REACTIONS (2)
  - PNEUMONIA [None]
  - HYPOCALCAEMIA [None]
